FAERS Safety Report 24250197 (Version 1)
Quarter: 2024Q3

REPORT INFORMATION
  Report Type: Report from Study
  Country: CO (occurrence: CO)
  Receive Date: 20240826
  Receipt Date: 20240826
  Transmission Date: 20241017
  Serious: Yes (Death, Other)
  Sender: BIOVITRUM
  Company Number: CO-AstraZeneca-2024-277049

PATIENT
  Age: 252 Day
  Sex: Male
  Weight: 6 kg

DRUGS (1)
  1. SYNAGIS [Suspect]
     Active Substance: PALIVIZUMAB
     Indication: Respiratory rate
     Dosage: MONTHLY
     Route: 030
     Dates: start: 20231215, end: 20240506

REACTIONS (1)
  - Respiratory arrest [Fatal]

NARRATIVE: CASE EVENT DATE: 20240811
